FAERS Safety Report 16609556 (Version 1)
Quarter: 2019Q3

REPORT INFORMATION
  Report Type: Spontaneous
  Country: US (occurrence: US)
  Receive Date: 20190607
  Receipt Date: 20190607
  Transmission Date: 20191004
  Serious: Yes (Other)
  Sender: FDA-Public Use
  Company Number: None

PATIENT
  Age: 62 Year
  Sex: Female
  Weight: 86.18 kg

DRUGS (1)
  1. OCREVUS [Suspect]
     Active Substance: OCRELIZUMAB
     Indication: MULTIPLE SCLEROSIS
     Dosage: ?          OTHER FREQUENCY:EVERY 6 MONTHS;OTHER ROUTE:INTRAVENOUS?
     Dates: start: 20181101, end: 20190520

REACTIONS (6)
  - Generalised oedema [None]
  - Dyspnoea [None]
  - Weight increased [None]
  - Heart rate increased [None]
  - Abdominal distension [None]
  - Asthenia [None]

NARRATIVE: CASE EVENT DATE: 20190506
